FAERS Safety Report 16772848 (Version 1)
Quarter: 2019Q3

REPORT INFORMATION
  Report Type: Spontaneous
  Country: US (occurrence: US)
  Receive Date: 20190904
  Receipt Date: 20190904
  Transmission Date: 20191005
  Serious: Yes (Hospitalization, Other)
  Sender: FDA-Public Use
  Company Number: US-MYLANLABS-2019M1082880

PATIENT
  Age: 31 Year
  Sex: Female

DRUGS (11)
  1. THIAMINE. [Suspect]
     Active Substance: THIAMINE
     Indication: PRODUCT USED FOR UNKNOWN INDICATION
     Route: 065
  2. TIZANIDINE. [Suspect]
     Active Substance: TIZANIDINE
     Dosage: UP TO 16 MG AT BEDTIME
     Route: 048
  3. TIZANIDINE. [Suspect]
     Active Substance: TIZANIDINE
     Dosage: 48 MILLIGRAM, QD
     Route: 048
  4. FOLIC ACID. [Suspect]
     Active Substance: FOLIC ACID
     Indication: PRODUCT USED FOR UNKNOWN INDICATION
     Route: 065
  5. ZOLPIDEM [Suspect]
     Active Substance: ZOLPIDEM TARTRATE
     Indication: SEDATIVE THERAPY
     Dosage: AT NIGHT THREE TIMES A WEEK
     Route: 048
  6. ONDANSETRON [Suspect]
     Active Substance: ONDANSETRON
     Indication: NAUSEA
     Route: 065
  7. TIZANIDINE. [Suspect]
     Active Substance: TIZANIDINE
     Indication: PAIN
     Dosage: 6 MILLIGRAM, Q2H
     Route: 048
  8. ACETAMINOPHEN. [Suspect]
     Active Substance: ACETAMINOPHEN
     Indication: PAIN
     Route: 065
  9. FLUOXETINE [Suspect]
     Active Substance: FLUOXETINE HYDROCHLORIDE
     Indication: PRODUCT USED FOR UNKNOWN INDICATION
     Route: 048
  10. CLONIDINE. [Suspect]
     Active Substance: CLONIDINE
     Indication: PRODUCT USED FOR UNKNOWN INDICATION
     Dosage: INITIAL 50% CALCULATED DOSE (UNSPECIFIED); THREE TIMES DAILY
     Route: 065
  11. CLONAZEPAM. [Suspect]
     Active Substance: CLONAZEPAM
     Indication: PRODUCT USED FOR UNKNOWN INDICATION
     Dosage: THREE TIMES A DAY
     Route: 048

REACTIONS (12)
  - Drug dependence [Recovering/Resolving]
  - Heart rate increased [Recovering/Resolving]
  - Intentional overdose [Recovering/Resolving]
  - Drug withdrawal headache [Recovering/Resolving]
  - Intentional product misuse [Recovering/Resolving]
  - Withdrawal hypertension [Recovering/Resolving]
  - Anxiety [Recovering/Resolving]
  - Discomfort [Recovering/Resolving]
  - Agitation [Recovering/Resolving]
  - Withdrawal syndrome [Recovering/Resolving]
  - Abdominal pain [Recovering/Resolving]
  - Maternal exposure during pregnancy [Unknown]
